FAERS Safety Report 7836625-0 (Version None)
Quarter: 2011Q4

REPORT INFORMATION
  Report Type: 
  Country: None (occurrence: None)
  Receive Date: 20111024
  Receipt Date: 20110714
  Transmission Date: 20120403
  Serious: No
  Sender: FDA-Public Use
  Company Number: US-ABBOTT-11P-163-0839851-00

PATIENT
  Sex: Female

DRUGS (2)
  1. LUPRON DEPOT [Suspect]
     Indication: ENDOMETRIOSIS
     Dosage: LAST INJECTION AT START OF JUN 2011
  2. NORETHINDRONE ACETATE [Concomitant]
     Indication: PROPHYLAXIS

REACTIONS (5)
  - METRORRHAGIA [None]
  - MIDDLE INSOMNIA [None]
  - ABDOMINAL PAIN [None]
  - MENORRHAGIA [None]
  - NAUSEA [None]
